FAERS Safety Report 4553849-9 (Version None)
Quarter: 2005Q1

REPORT INFORMATION
  Report Type: 
  Country: None (occurrence: None)
  Receive Date: 20050110
  Receipt Date: 20050110
  Transmission Date: 20050727
  Serious: Yes (Hospitalization)
  Sender: FDA-Public Use
  Company Number: None

PATIENT
  Sex: Female
  Weight: 65.59 kg

DRUGS (5)
  1. XANAX [Suspect]
  2. NAPROSYN [Suspect]
  3. ALTACE [Concomitant]
  4. PHENERGAN [Concomitant]
  5. PROTONIX [Concomitant]

REACTIONS (1)
  - HEPATITIS [None]
